FAERS Safety Report 13061227 (Version 1)
Quarter: 2016Q4

REPORT INFORMATION
  Report Type: Spontaneous
  Country: US (occurrence: US)
  Receive Date: 20161226
  Receipt Date: 20161226
  Transmission Date: 20170207
  Serious: Yes (Other)
  Sender: FDA-Public Use
  Company Number: US-ROCHE-1870968

PATIENT
  Age: 68 Year
  Sex: Female
  Weight: 97.61 kg

DRUGS (3)
  1. LUCENTIS [Suspect]
     Active Substance: RANIBIZUMAB
     Indication: DIABETIC RETINOPATHY
     Dosage: ONE DOSE IN LEFT EYE ONE DOSE IN RIGHT ;ONGOING: NO
     Route: 065
     Dates: start: 201411, end: 201412
  2. AVASTIN [Suspect]
     Active Substance: BEVACIZUMAB
     Dosage: RIGHT EYE ;ONGOING: NO
     Route: 065
     Dates: start: 20161114
  3. AVASTIN [Suspect]
     Active Substance: BEVACIZUMAB
     Indication: DIABETIC RETINOPATHY
     Dosage: LEFT EYE ;ONGOING: NO
     Route: 065
     Dates: start: 20161003

REACTIONS (3)
  - Eye haemorrhage [Recovered/Resolved]
  - Renal impairment [Recovering/Resolving]
  - Haemoglobin decreased [Recovered/Resolved]

NARRATIVE: CASE EVENT DATE: 201610
